FAERS Safety Report 7768854-9 (Version None)
Quarter: 2011Q3

REPORT INFORMATION
  Report Type: 
  Country: None (occurrence: None)
  Receive Date: 20110922
  Receipt Date: 20110325
  Transmission Date: 20111222
  Serious: No
  Sender: FDA-Public Use
  Company Number: US-ASTRAZENECA-2011SE17150

PATIENT
  Age: 60 Year
  Sex: Male
  Weight: 74.8 kg

DRUGS (9)
  1. SEROQUEL XR [Suspect]
     Indication: POST-TRAUMATIC STRESS DISORDER
     Route: 048
     Dates: start: 20070101
  2. SEROQUEL XR [Suspect]
     Route: 048
  3. SEROQUEL XR [Suspect]
     Route: 048
  4. RESTORIL [Concomitant]
  5. SEROQUEL XR [Suspect]
     Indication: ANXIETY
     Route: 048
     Dates: start: 20070101
  6. SEROQUEL XR [Suspect]
     Indication: BIPOLAR DISORDER
     Route: 048
     Dates: start: 20070101
  7. ZOLOFT [Concomitant]
  8. SEROQUEL XR [Suspect]
     Route: 048
  9. KLONOPIN [Concomitant]

REACTIONS (4)
  - DRUG DOSE OMISSION [None]
  - MAJOR DEPRESSION [None]
  - NERVOUSNESS [None]
  - FEELING ABNORMAL [None]
